FAERS Safety Report 22197400 (Version 1)
Quarter: 2023Q2

REPORT INFORMATION
  Report Type: Spontaneous
  Country: US (occurrence: None)
  Receive Date: 20230411
  Receipt Date: 20230411
  Transmission Date: 20230722
  Serious: No
  Sender: FDA-Public Use
  Company Number: None

PATIENT
  Age: 67 Year
  Sex: Female
  Weight: 86.18 kg

DRUGS (13)
  1. METHYLPHENIDATE HYDROCHLORIDE [Suspect]
     Active Substance: METHYLPHENIDATE HYDROCHLORIDE
     Indication: Attention deficit hyperactivity disorder
     Dosage: OTHER FREQUENCY : EVERY MORNING ;?
     Route: 048
     Dates: start: 2007
  2. CONCERTA [Concomitant]
     Active Substance: METHYLPHENIDATE HYDROCHLORIDE
  3. FLUTICASONE [Concomitant]
     Active Substance: FLUTICASONE
  4. RESTASIS [Concomitant]
     Active Substance: CYCLOSPORINE
  5. OMEPRAZOLE [Concomitant]
     Active Substance: OMEPRAZOLE
  6. LEVOTHYROXINE [Concomitant]
     Active Substance: LEVOTHYROXINE
  7. BUTALBITAL, ACETAMINOPHEN, AND CAFFEINE [Concomitant]
     Active Substance: ACETAMINOPHEN\BUTALBITAL\CAFFEINE
  8. EFFEXOR [Concomitant]
     Active Substance: VENLAFAXINE HYDROCHLORIDE
  9. VALTREX [Concomitant]
     Active Substance: VALACYCLOVIR HYDROCHLORIDE
  10. VITAMIN D NOS [Concomitant]
     Active Substance: VITAMIN D NOS
  11. FISH OIL [Concomitant]
     Active Substance: FISH OIL
  12. GLUCOSAMINE [Concomitant]
     Active Substance: GLUCOSAMINE
  13. NAPROXEN [Concomitant]
     Active Substance: NAPROXEN

REACTIONS (8)
  - Anxiety [None]
  - Nervousness [None]
  - Anxiety [None]
  - Irritability [None]
  - Feeling abnormal [None]
  - Product substitution issue [None]
  - Insurance issue [None]
  - Economic problem [None]

NARRATIVE: CASE EVENT DATE: 20220422
